FAERS Safety Report 20438005 (Version 1)
Quarter: 2022Q1

REPORT INFORMATION
  Report Type: Spontaneous
  Country: None (occurrence: IE)
  Receive Date: 20220207
  Receipt Date: 20220207
  Transmission Date: 20220424
  Serious: Yes (Other)
  Sender: FDA-Public Use
  Company Number: IE-Nova Laboratories Limited-2124679

PATIENT
  Age: 7 Year
  Sex: Male

DRUGS (8)
  1. PURIXAN [Suspect]
     Active Substance: MERCAPTOPURINE
     Indication: Acute lymphocytic leukaemia
     Dates: start: 2018
  2. CYCLOPHOSPHAMIDE [Suspect]
     Active Substance: CYCLOPHOSPHAMIDE
     Dates: start: 2018
  3. PEGASPARGASE [Suspect]
     Active Substance: PEGASPARGASE
     Dates: start: 2018
  4. METHOTREXATE [Suspect]
     Active Substance: METHOTREXATE
     Dates: start: 2018
  5. DEXAMETHASONE [Suspect]
     Active Substance: DEXAMETHASONE
     Dates: start: 2018
  6. CYTARABINE [Suspect]
     Active Substance: CYTARABINE
     Dates: start: 2018
  7. DOXORUBICIN [Suspect]
     Active Substance: DOXORUBICIN
     Dates: start: 2018
  8. VINCRISTINE [Suspect]
     Active Substance: VINCRISTINE
     Dates: start: 2018

REACTIONS (2)
  - Rash [Unknown]
  - Lentigo [Unknown]

NARRATIVE: CASE EVENT DATE: 20200101
